FAERS Safety Report 13928409 (Version 1)
Quarter: 2017Q3

REPORT INFORMATION
  Report Type: Spontaneous
  Country: US (occurrence: US)
  Receive Date: 20170901
  Receipt Date: 20170901
  Transmission Date: 20171127
  Serious: No
  Sender: FDA-Public Use
  Company Number: US-BAYER-2017-153742

PATIENT
  Age: 73 Year
  Sex: Male
  Weight: 75 kg

DRUGS (2)
  1. LISINOPRIL. [Concomitant]
     Active Substance: LISINOPRIL
     Dosage: UNK
     Dates: start: 2015
  2. MIRALAX [Suspect]
     Active Substance: POLYETHYLENE GLYCOL 3350
     Indication: COLONOSCOPY
     Dosage: UNK
     Dates: start: 2015

REACTIONS (7)
  - Unevaluable event [Unknown]
  - Product use issue [None]
  - Product use in unapproved indication [Unknown]
  - Inappropriate prescribing [None]
  - Product use in unapproved indication [Unknown]
  - Off label use [Unknown]
  - Off label use [None]

NARRATIVE: CASE EVENT DATE: 2015
